FAERS Safety Report 6686391-X (Version None)
Quarter: 2010Q2

REPORT INFORMATION
  Report Type: 
  Country: None (occurrence: None)
  Receive Date: 20100413
  Receipt Date: 20090819
  Transmission Date: 20101027
  Serious: No
  Sender: FDA-Public Use
  Company Number: 2009-00428

PATIENT
  Age: 63 Year
  Sex: Female
  Weight: 63.5036 kg

DRUGS (6)
  1. ZICAM COLD REMEDY GEL SWABS [Suspect]
     Dosage: QD
     Dates: end: 20090401
  2. TRAMADOL HCL [Concomitant]
  3. CENTRUM MULTIVITAMIN [Concomitant]
  4. VITAMIN C [Concomitant]
  5. VITAMIN D [Concomitant]
  6. LOVAZA [Concomitant]

REACTIONS (8)
  - AGEUSIA [None]
  - ANOSMIA [None]
  - DRY SKIN [None]
  - EPISTAXIS [None]
  - NASAL DISCOMFORT [None]
  - NASAL DISORDER [None]
  - SECRETION DISCHARGE [None]
  - SKIN EXFOLIATION [None]
